FAERS Safety Report 13576136 (Version 1)
Quarter: 2017Q2

REPORT INFORMATION
  Report Type: Spontaneous
  Country: BR (occurrence: BR)
  Receive Date: 20170524
  Receipt Date: 20170524
  Transmission Date: 20170830
  Serious: Yes (Hospitalization, Other)
  Sender: FDA-Public Use
  Company Number: BR-ROCHE-1937215

PATIENT
  Age: 35 Year
  Sex: Female

DRUGS (2)
  1. ACTEMRA [Suspect]
     Active Substance: TOCILIZUMAB
     Indication: RHEUMATOID ARTHRITIS
     Route: 042
     Dates: start: 201704
  2. PREDNISONE. [Concomitant]
     Active Substance: PREDNISONE
     Indication: RHEUMATOID ARTHRITIS
     Route: 065
     Dates: start: 201704

REACTIONS (12)
  - Pyrexia [Unknown]
  - Depressed level of consciousness [Unknown]
  - Therapeutic response decreased [Unknown]
  - Motor dysfunction [Unknown]
  - Rheumatoid arthritis [Unknown]
  - Confusional state [Unknown]
  - Disorientation [Unknown]
  - General physical health deterioration [Unknown]
  - Partial seizures [Unknown]
  - Delirium [Unknown]
  - Asthenia [Unknown]
  - Leukocytosis [Unknown]

NARRATIVE: CASE EVENT DATE: 20170512
